FAERS Safety Report 9939614 (Version 2)
Quarter: 2014Q3

REPORT INFORMATION
  Report Type: Spontaneous
  Country: AT (occurrence: AT)
  Receive Date: 20140303
  Receipt Date: 20140919
  Transmission Date: 20150326
  Serious: Yes (Other)
  Sender: FDA-Public Use
  Company Number: AT-ELI_LILLY_AND_COMPANY-AT201402008222

PATIENT
  Age: 38 Year
  Sex: Male

DRUGS (14)
  1. ZYPREXA [Suspect]
     Active Substance: OLANZAPINE
     Indication: PRODUCT USED FOR UNKNOWN INDICATION
     Dosage: 10 MG, UNKNOWN
     Route: 065
     Dates: start: 20140206, end: 20140209
  2. ZYPREXA [Interacting]
     Active Substance: OLANZAPINE
     Dosage: 20 MG, UNKNOWN
     Route: 065
     Dates: start: 20140212, end: 20140213
  3. SEROXAT [Interacting]
     Active Substance: PAROXETINE HYDROCHLORIDE
     Indication: PRODUCT USED FOR UNKNOWN INDICATION
     Dosage: 20 MG, UNKNOWN
     Dates: start: 20110318, end: 20140219
  4. FRISIUM [Interacting]
     Active Substance: CLOBAZAM
     Indication: PRODUCT USED FOR UNKNOWN INDICATION
     Dosage: 20 MG, UNKNOWN
     Dates: start: 20140207, end: 20140211
  5. FRISIUM [Interacting]
     Active Substance: CLOBAZAM
     Dosage: 15 MG, UNKNOWN
     Dates: start: 20140212
  6. ZYPREXA [Interacting]
     Active Substance: OLANZAPINE
     Dosage: 5 MG, UNKNOWN
     Route: 065
     Dates: start: 20140215, end: 20140215
  7. ENALAPRIL [Concomitant]
     Active Substance: ENALAPRIL
     Dosage: 10 MG, UNKNOWN
     Dates: start: 2009
  8. ANDROCUR [Concomitant]
     Active Substance: CYPROTERONE ACETATE
     Dosage: 100 MG, UNKNOWN
     Dates: start: 20140212
  9. ZYPREXA [Interacting]
     Active Substance: OLANZAPINE
     Dosage: 15 MG, UNKNOWN
     Route: 065
     Dates: start: 20140212, end: 20140212
  10. ZYPREXA [Interacting]
     Active Substance: OLANZAPINE
     Dosage: 10 MG, UNKNOWN
     Route: 065
     Dates: start: 20140214, end: 20140214
  11. LEVETIRACETAM. [Concomitant]
     Active Substance: LEVETIRACETAM
     Dosage: 3000 MG, UNKNOWN
  12. TOPIRAMAT [Concomitant]
     Active Substance: TOPIRAMATE
     Dosage: 225 MG, UNKNOWN
  13. EUTHYROX [Concomitant]
     Active Substance: LEVOTHYROXINE SODIUM
     Dosage: 75 UG, UNKNOWN
  14. ANDROCUR [Concomitant]
     Active Substance: CYPROTERONE ACETATE
     Dosage: 50 MG, UNKNOWN
     Dates: end: 20140211

REACTIONS (5)
  - Renal cyst [Unknown]
  - Urinary tract infection [Unknown]
  - Priapism [Recovering/Resolving]
  - Drug interaction [Unknown]
  - Leukocytosis [Unknown]

NARRATIVE: CASE EVENT DATE: 20140214
